FAERS Safety Report 7963264 (Version 3)
Quarter: 2013Q1

REPORT INFORMATION
  Report Type: Spontaneous
  Country: US (occurrence: None)
  Receive Date: 20110511
  Receipt Date: 20130222
  Transmission Date: 20140127
  Serious: Yes (Other)
  Sender: FDA-Public Use
  Company Number: ACO_23863_2011

PATIENT
  Age: 47 Year
  Sex: Male

DRUGS (4)
  1. AMPYRA [Suspect]
     Indication: MULTIPLE SCLEROSIS
     Dosage: 10 MG, BID
     Dates: start: 20101028, end: 20110411
  2. MELATONIN (MELATONIN) [Concomitant]
  3. MULTIVITAMIN /00097801/ (ASCORBIC ACID, CALCIUM PANTOTHENATE, ERGOCALCIFEROL, NICOTINAMIDE, PYRIDOXINE HYDROCHLORIDE, RETINOL, RIBOFLAVIN, THIAMINE HYDROCHLORIDE) [Concomitant]
  4. HERBAL SUPPLEMENT [Concomitant]

REACTIONS (7)
  - Haematoma [None]
  - Drug ineffective [None]
  - Convulsion [None]
  - Contusion [None]
  - Loss of consciousness [None]
  - Fall [None]
  - Excoriation [None]
